FAERS Safety Report 11785091 (Version 2)
Quarter: 2015Q4

REPORT INFORMATION
  Report Type: Report from Study
  Country: US (occurrence: US)
  Receive Date: 20151130
  Receipt Date: 20151215
  Transmission Date: 20160305
  Serious: Yes (Hospitalization)
  Sender: FDA-Public Use
  Company Number: US-CELGENE-USA-2015115749

PATIENT
  Age: 44 Year
  Sex: Female
  Weight: 117 kg

DRUGS (50)
  1. GEMCITABINE [Suspect]
     Active Substance: GEMCITABINE\GEMCITABINE HYDROCHLORIDE
     Indication: TRIPLE NEGATIVE BREAST CANCER
     Dosage: CYCLE 1
     Route: 041
     Dates: start: 20150302, end: 20150309
  2. ALBUTEROL. [Concomitant]
     Active Substance: ALBUTEROL
     Indication: PULMONARY CONGESTION
     Dosage: 480 MILLIGRAM
     Route: 055
     Dates: start: 20150727
  3. FLUTICASONE [Concomitant]
     Active Substance: FLUTICASONE\FLUTICASONE PROPIONATE
     Indication: NASAL CONGESTION
     Dosage: 30 MILLILITER
     Route: 045
     Dates: start: 20150410
  4. TEMAZEPAM. [Concomitant]
     Active Substance: TEMAZEPAM
     Indication: INSOMNIA
     Dosage: 20 MILLIGRAM
     Route: 048
     Dates: start: 20140610
  5. FUROSEMIDE. [Concomitant]
     Active Substance: FUROSEMIDE
     Indication: OEDEMA
     Route: 048
     Dates: start: 20150406, end: 20151103
  6. CIPROFLOXACIN. [Concomitant]
     Active Substance: CIPROFLOXACIN
     Indication: INFECTION PROPHYLAXIS
     Route: 041
     Dates: start: 20151113, end: 20151117
  7. BUDESONIDE. [Concomitant]
     Active Substance: BUDESONIDE
     Indication: COUGH
  8. DOCUSATE SODIUM. [Concomitant]
     Active Substance: DOCUSATE SODIUM
     Indication: CONSTIPATION
     Dosage: 300 MILLILITER
     Route: 048
     Dates: start: 201502
  9. ABRAXANE [Suspect]
     Active Substance: PACLITAXEL
     Indication: TRIPLE NEGATIVE BREAST CANCER
     Dosage: CYCLE 1
     Route: 041
     Dates: start: 20150302, end: 20150309
  10. ALBUTEROL. [Concomitant]
     Active Substance: ALBUTEROL
     Indication: ATELECTASIS
     Dosage: 15 MILLIGRAM
     Route: 065
     Dates: start: 20151113
  11. BENZONATATE. [Concomitant]
     Active Substance: BENZONATATE
     Indication: COUGH
     Route: 048
     Dates: start: 20150210
  12. GUAIFENESIN. [Concomitant]
     Active Substance: GUAIFENESIN
     Indication: COUGH
     Dosage: 100 MILLIGRAM
     Route: 048
     Dates: start: 20150327
  13. PHENOL. [Concomitant]
     Active Substance: PHENOL
     Indication: COUGH
     Dosage: 2.5 PERCENT
     Route: 048
     Dates: start: 20150412
  14. METOPROLOL [Concomitant]
     Active Substance: METOPROLOL
     Indication: HYPERTENSION
     Dosage: 2.5 PERCENT
     Route: 048
     Dates: start: 20150714
  15. NORMAL SALINE [Concomitant]
     Active Substance: SODIUM CHLORIDE
     Indication: INFUSION
     Dosage: 8 MILLIGRAM
     Route: 041
     Dates: start: 20150713, end: 20150727
  16. PHOS NAK [Concomitant]
     Indication: ELECTROLYTE SUBSTITUTION THERAPY
     Dosage: 1 PACKAGE
     Route: 048
     Dates: start: 20150721
  17. ONDANSETRON [Concomitant]
     Active Substance: ONDANSETRON
     Indication: VOMITING
     Route: 041
     Dates: start: 20151115, end: 20151117
  18. DEXAMETHASONE. [Concomitant]
     Active Substance: DEXAMETHASONE
     Indication: PREMEDICATION
     Route: 041
     Dates: start: 20150302, end: 20151109
  19. FUROSEMIDE. [Concomitant]
     Active Substance: FUROSEMIDE
     Route: 048
     Dates: start: 20151104
  20. ABRAXANE [Suspect]
     Active Substance: PACLITAXEL
     Dosage: CYCLE 11
     Route: 041
     Dates: start: 20151102, end: 20151109
  21. FILGRASTIM [Concomitant]
     Active Substance: FILGRASTIM
     Indication: NEUTROPENIA
     Route: 058
     Dates: start: 20151113, end: 20151114
  22. PRILOCAINE [Concomitant]
     Active Substance: PRILOCAINE
     Indication: CATHETER SITE RELATED REACTION
     Dosage: 50 MILLIGRAM
     Route: 061
     Dates: start: 20150311
  23. ONDANSETRON [Concomitant]
     Active Substance: ONDANSETRON
     Indication: PREMEDICATION
     Dosage: 50 MILLIGRAM
     Route: 041
     Dates: start: 20150302, end: 20151109
  24. ONDANSETRON [Concomitant]
     Active Substance: ONDANSETRON
     Indication: NAUSEA
     Route: 041
     Dates: start: 201508, end: 201508
  25. DEXAMETHASONE. [Concomitant]
     Active Substance: DEXAMETHASONE
     Indication: VOMITING
  26. METRONIDAZOLE. [Concomitant]
     Active Substance: METRONIDAZOLE
     Indication: INFECTION PROPHYLAXIS
     Route: 041
     Dates: start: 20151113, end: 20151117
  27. BUDESONIDE. [Concomitant]
     Active Substance: BUDESONIDE
     Indication: PULMONARY CONGESTION
     Dosage: 800 MILLIGRAM
     Route: 065
     Dates: start: 20151113
  28. IBUPROFEN. [Concomitant]
     Active Substance: IBUPROFEN
     Indication: PLEURITIC PAIN
  29. BENZONATATE. [Concomitant]
     Active Substance: BENZONATATE
     Indication: PLEURITIC PAIN
  30. TRAMADOL. [Concomitant]
     Active Substance: TRAMADOL
     Indication: PAIN
     Dosage: 1 MILLIGRAM
     Route: 048
     Dates: start: 20150212
  31. MILK OF MAGNESIA [Concomitant]
     Active Substance: MAGNESIUM HYDROXIDE
     Indication: CONSTIPATION
     Dosage: 4000 MILLILITER
     Route: 048
     Dates: start: 20150304
  32. ACETAMINOPHEN. [Concomitant]
     Active Substance: ACETAMINOPHEN
     Indication: BACK PAIN
     Dosage: 1
     Route: 048
     Dates: start: 20151113, end: 20151117
  33. LORATADINE. [Concomitant]
     Active Substance: LORATADINE
     Indication: RHINITIS ALLERGIC
     Route: 048
     Dates: start: 20150608
  34. DEXAMETHASONE. [Concomitant]
     Active Substance: DEXAMETHASONE
     Indication: NAUSEA
  35. GEMCITABINE [Suspect]
     Active Substance: GEMCITABINE\GEMCITABINE HYDROCHLORIDE
     Dosage: CYCLE 11
     Route: 041
     Dates: start: 20151102, end: 20151109
  36. MAGNESIUM CITRATE. [Concomitant]
     Active Substance: MAGNESIUM CITRATE
     Indication: PREMEDICATION
     Dosage: 1500 MILLIGRAM
     Route: 048
     Dates: start: 20151115, end: 20151115
  37. ACETAMINOPHEN. [Concomitant]
     Active Substance: ACETAMINOPHEN
     Indication: PLEURITIC PAIN
     Dosage: 800 MILLIGRAM
     Route: 048
     Dates: start: 20150310
  38. ACETAMINOPHEN. [Concomitant]
     Active Substance: ACETAMINOPHEN
     Indication: PYREXIA
     Dosage: .1 MILLIGRAM
     Route: 048
     Dates: start: 20150715
  39. LIDOCAINE. [Concomitant]
     Active Substance: LIDOCAINE
     Indication: PAIN PROPHYLAXIS
     Dosage: 100 MILLIGRAM
     Route: 061
     Dates: start: 20150311
  40. AUGMENTIN [Concomitant]
     Active Substance: AMOXICILLIN\CLAVULANATE POTASSIUM
     Indication: UPPER RESPIRATORY TRACT INFECTION
     Route: 048
     Dates: start: 20150821, end: 20150901
  41. POLYETHYLENE GLYCOL [Concomitant]
     Active Substance: POLYETHYLENE GLYCOLS
     Indication: PREMEDICATION
     Route: 048
     Dates: start: 20151115, end: 20151115
  42. ACETAMINOPHEN. [Concomitant]
     Active Substance: ACETAMINOPHEN
     Indication: PAIN
  43. HYDROCODONE [Concomitant]
     Active Substance: HYDROCODONE
     Indication: PLEURITIC PAIN
     Dosage: 10 MILLIGRAM
     Route: 048
     Dates: start: 20150210
  44. MORPHINE [Concomitant]
     Active Substance: MORPHINE
     Indication: PAIN
     Route: 041
     Dates: start: 20151113, end: 20151117
  45. IBUPROFEN. [Concomitant]
     Active Substance: IBUPROFEN
     Indication: BACK PAIN
     Dosage: 12 MILLIGRAM
     Route: 048
     Dates: start: 20150212
  46. CETIRIZINE [Concomitant]
     Active Substance: CETIRIZINE HYDROCHLORIDE
     Indication: RHINITIS ALLERGIC
     Route: 048
     Dates: start: 20150201
  47. CETIRIZINE [Concomitant]
     Active Substance: CETIRIZINE HYDROCHLORIDE
     Indication: PLEURITIC PAIN
  48. TRAMADOL. [Concomitant]
     Active Substance: TRAMADOL
     Indication: PLEURITIC PAIN
  49. DOCUSATE SODIUM. [Concomitant]
     Active Substance: DOCUSATE SODIUM
     Indication: PLEURITIC PAIN
  50. HYDROCODONE [Concomitant]
     Active Substance: HYDROCODONE
     Indication: BACK PAIN

REACTIONS (1)
  - Haemorrhoidal haemorrhage [Recovered/Resolved]

NARRATIVE: CASE EVENT DATE: 20151112
